FAERS Safety Report 6814891-8 (Version None)
Quarter: 2010Q3

REPORT INFORMATION
  Report Type: 
  Country: None (occurrence: None)
  Receive Date: 20100702
  Receipt Date: 20100629
  Transmission Date: 20110219
  Serious: Yes (Hospitalization)
  Sender: FDA-Public Use
  Company Number: FR-ROCHE-705457

PATIENT
  Sex: Male
  Weight: 77 kg

DRUGS (3)
  1. BEVACIZUMAB [Suspect]
     Indication: NON-SMALL CELL LUNG CANCER
     Dosage: FORM: INFUSION.LAST DOSE PRIOR TO SAE 20 APRIL 2010
     Route: 042
     Dates: start: 20100216, end: 20100518
  2. CISPLATIN [Suspect]
     Indication: NON-SMALL CELL LUNG CANCER
     Dosage: FORM: INFUSION.LAST DOSE PRIOR TO SAE: 20 APR 2010
     Route: 042
     Dates: start: 20100216
  3. PEMETREXED [Suspect]
     Indication: NON-SMALL CELL LUNG CANCER
     Dosage: FORM: INFUSION.LAST DOSE PRIOR TO SAE: 20 APR 2010
     Route: 042
     Dates: start: 20100216

REACTIONS (1)
  - PERICARDIAL EFFUSION [None]
